FAERS Safety Report 5476296-4 (Version None)
Quarter: 2007Q4

REPORT INFORMATION
  Report Type: 
  Country: None (occurrence: None)
  Receive Date: 20071003
  Receipt Date: 20070921
  Transmission Date: 20080405
  Serious: Yes (Hospitalization)
  Sender: FDA-Public Use
  Company Number: SE-PFIZER INC-2003174663SE

PATIENT
  Sex: Female
  Weight: 63.4 kg

DRUGS (5)
  1. EPIRUBICIN HYDROCHLORIDE [Suspect]
     Indication: BREAST CANCER
     Dates: start: 20030731, end: 20030822
  2. FLUOROURACIL [Suspect]
     Indication: BREAST CANCER
     Dates: start: 20030731, end: 20030822
  3. CYCLOPHOSPHAMIDE [Suspect]
     Indication: BREAST CANCER
     Dates: start: 20030731, end: 20030822
  4. ATENOLOL [Concomitant]
  5. NEUPOGEN [Concomitant]
     Dates: start: 20030826

REACTIONS (4)
  - PAIN [None]
  - PALPITATIONS [None]
  - PYREXIA [None]
  - SYNCOPE [None]
